FAERS Safety Report 25016475 (Version 1)
Quarter: 2025Q1

REPORT INFORMATION
  Report Type: Spontaneous
  Country: CA (occurrence: CA)
  Receive Date: 20250227
  Receipt Date: 20250227
  Transmission Date: 20250409
  Serious: Yes (Other)
  Sender: CELLTRION
  Company Number: CA-CELLTRION INC.-2025CA005185

PATIENT

DRUGS (126)
  1. ADALIMUMAB [Suspect]
     Active Substance: ADALIMUMAB
     Indication: Crohn^s disease
     Route: 048
  2. ADALIMUMAB [Suspect]
     Active Substance: ADALIMUMAB
     Route: 048
  3. ADALIMUMAB [Suspect]
     Active Substance: ADALIMUMAB
     Route: 058
  4. ACETAMINOPHEN [Suspect]
     Active Substance: ACETAMINOPHEN
     Indication: Ill-defined disorder
     Route: 065
  5. ACETAMINOPHEN [Suspect]
     Active Substance: ACETAMINOPHEN
     Route: 065
  6. ACETAMINOPHEN [Suspect]
     Active Substance: ACETAMINOPHEN
  7. ASACOL [Suspect]
     Active Substance: MESALAMINE
     Indication: Product used for unknown indication
  8. ASACOL [Suspect]
     Active Substance: MESALAMINE
  9. ASACOL [Suspect]
     Active Substance: MESALAMINE
  10. ASACOL [Suspect]
     Active Substance: MESALAMINE
  11. ASACOL [Suspect]
     Active Substance: MESALAMINE
  12. ASACOL [Suspect]
     Active Substance: MESALAMINE
  13. ASACOL [Suspect]
     Active Substance: MESALAMINE
  14. ASACOL [Suspect]
     Active Substance: MESALAMINE
  15. ASACOL [Suspect]
     Active Substance: MESALAMINE
  16. ASACOL [Suspect]
     Active Substance: MESALAMINE
  17. ASACOL [Suspect]
     Active Substance: MESALAMINE
  18. ASPIRIN [Suspect]
     Active Substance: ASPIRIN
     Indication: Product used for unknown indication
  19. BUDESONIDE [Suspect]
     Active Substance: BUDESONIDE
     Indication: Product used for unknown indication
     Route: 048
  20. BUDESONIDE [Suspect]
     Active Substance: BUDESONIDE
  21. BUDESONIDE [Suspect]
     Active Substance: BUDESONIDE
     Route: 048
  22. BUDESONIDE [Suspect]
     Active Substance: BUDESONIDE
  23. BUDESONIDE [Suspect]
     Active Substance: BUDESONIDE
     Route: 048
  24. BUDESONIDE [Suspect]
     Active Substance: BUDESONIDE
     Route: 048
  25. CANDESARTAN CILEXETIL [Suspect]
     Active Substance: CANDESARTAN CILEXETIL
     Indication: Product used for unknown indication
     Route: 048
  26. COMIRNATY (TOZINAMERAN) [Suspect]
     Active Substance: TOZINAMERAN
     Indication: Product used for unknown indication
  27. COMIRNATY (TOZINAMERAN) [Suspect]
     Active Substance: TOZINAMERAN
  28. BUDESONIDE [Suspect]
     Active Substance: BUDESONIDE
     Indication: Product used for unknown indication
     Route: 048
  29. DAPAGLIFLOZIN [Suspect]
     Active Substance: DAPAGLIFLOZIN
     Indication: Ill-defined disorder
  30. ENTYVIO [Suspect]
     Active Substance: VEDOLIZUMAB
     Indication: Product used for unknown indication
  31. ENTYVIO [Suspect]
     Active Substance: VEDOLIZUMAB
     Route: 048
  32. ENTYVIO [Suspect]
     Active Substance: VEDOLIZUMAB
     Route: 042
  33. ENTYVIO [Suspect]
     Active Substance: VEDOLIZUMAB
     Route: 048
  34. ENTYVIO [Suspect]
     Active Substance: VEDOLIZUMAB
  35. ENTYVIO [Suspect]
     Active Substance: VEDOLIZUMAB
  36. EPINEPHRINE [Suspect]
     Active Substance: EPINEPHRINE
     Indication: Product used for unknown indication
  37. ESCITALOPRAM [Suspect]
     Active Substance: ESCITALOPRAM OXALATE
     Indication: Product used for unknown indication
  38. ESOMEPRAZOLE [Suspect]
     Active Substance: ESOMEPRAZOLE
     Indication: Gastritis
     Route: 065
  39. FELODIPINE [Suspect]
     Active Substance: FELODIPINE
     Indication: Hypertension
     Route: 048
  40. FUROSEMIDE [Suspect]
     Active Substance: FUROSEMIDE
     Indication: Product used for unknown indication
     Route: 065
  41. GABAPENTIN [Suspect]
     Active Substance: GABAPENTIN
     Indication: Product used for unknown indication
  42. HUMIRA [Suspect]
     Active Substance: ADALIMUMAB
     Indication: Crohn^s disease
  43. HUMIRA [Suspect]
     Active Substance: ADALIMUMAB
  44. HUMIRA [Suspect]
     Active Substance: ADALIMUMAB
     Route: 048
  45. HUMIRA [Suspect]
     Active Substance: ADALIMUMAB
     Route: 048
  46. INFLECTRA [Suspect]
     Active Substance: INFLIXIMAB-DYYB
     Indication: Crohn^s disease
     Route: 042
  47. INFLECTRA [Suspect]
     Active Substance: INFLIXIMAB-DYYB
     Route: 042
  48. INFLIXIMAB [Suspect]
     Active Substance: INFLIXIMAB
     Indication: Crohn^s disease
     Route: 042
  49. INFLIXIMAB [Suspect]
     Active Substance: INFLIXIMAB
     Route: 042
  50. INFLIXIMAB [Suspect]
     Active Substance: INFLIXIMAB
     Route: 042
  51. INFLIXIMAB [Suspect]
     Active Substance: INFLIXIMAB
     Route: 042
  52. LEVOTHYROXINE SODIUM [Suspect]
     Active Substance: LEVOTHYROXINE SODIUM
     Indication: Product used for unknown indication
     Route: 065
  53. MEBEVERINE [Suspect]
     Active Substance: MEBEVERINE
     Indication: Product used for unknown indication
  54. MESALAMINE [Suspect]
     Active Substance: MESALAMINE
     Indication: Product used for unknown indication
     Route: 048
  55. MESALAMINE [Suspect]
     Active Substance: MESALAMINE
  56. MESALAMINE [Suspect]
     Active Substance: MESALAMINE
  57. MESALAMINE [Suspect]
     Active Substance: MESALAMINE
  58. MESALAMINE [Suspect]
     Active Substance: MESALAMINE
  59. MESALAMINE [Suspect]
     Active Substance: MESALAMINE
  60. MESALAMINE [Suspect]
     Active Substance: MESALAMINE
  61. MESALAMINE [Suspect]
     Active Substance: MESALAMINE
  62. MESALAMINE [Suspect]
     Active Substance: MESALAMINE
  63. MESALAMINE [Suspect]
     Active Substance: MESALAMINE
     Route: 048
  64. MESALAMINE [Suspect]
     Active Substance: MESALAMINE
     Route: 048
  65. MESALAMINE [Suspect]
     Active Substance: MESALAMINE
  66. MESALAMINE [Suspect]
     Active Substance: MESALAMINE
     Route: 048
  67. MESALAMINE [Suspect]
     Active Substance: MESALAMINE
  68. MESALAMINE [Suspect]
     Active Substance: MESALAMINE
  69. MESALAMINE [Suspect]
     Active Substance: MESALAMINE
  70. MESALAMINE [Suspect]
     Active Substance: MESALAMINE
     Route: 048
  71. MESALAMINE [Suspect]
     Active Substance: MESALAMINE
  72. MESALAMINE [Suspect]
     Active Substance: MESALAMINE
  73. MESALAMINE [Suspect]
     Active Substance: MESALAMINE
  74. MESALAMINE [Suspect]
     Active Substance: MESALAMINE
     Route: 048
  75. MESALAMINE [Suspect]
     Active Substance: MESALAMINE
  76. MESALAMINE [Suspect]
     Active Substance: MESALAMINE
  77. MESALAMINE [Suspect]
     Active Substance: MESALAMINE
     Route: 048
  78. MESALAMINE [Suspect]
     Active Substance: MESALAMINE
  79. MESALAMINE [Suspect]
     Active Substance: MESALAMINE
  80. MESALAMINE [Suspect]
     Active Substance: MESALAMINE
  81. METFORMIN [Suspect]
     Active Substance: METFORMIN HYDROCHLORIDE
     Indication: Product used for unknown indication
  82. OMEPRAZOLE [Suspect]
     Active Substance: OMEPRAZOLE
     Indication: Gastritis
  83. OXYCODONE HYDROCHLORIDE [Suspect]
     Active Substance: OXYCODONE HYDROCHLORIDE
     Indication: Product used for unknown indication
  84. PARA-AMINOSALICYLIC ACID [Suspect]
     Active Substance: AMINOSALICYLIC ACID
     Indication: Product used for unknown indication
     Route: 048
  85. REMICADE [Suspect]
     Active Substance: INFLIXIMAB
     Indication: Crohn^s disease
     Route: 042
  86. REMICADE [Suspect]
     Active Substance: INFLIXIMAB
     Route: 042
  87. REMICADE [Suspect]
     Active Substance: INFLIXIMAB
     Route: 042
  88. REMICADE [Suspect]
     Active Substance: INFLIXIMAB
  89. ROSUVASTATIN [Suspect]
     Active Substance: ROSUVASTATIN
     Indication: Ill-defined disorder
     Route: 058
  90. ROSUVASTATIN [Suspect]
     Active Substance: ROSUVASTATIN
     Indication: Blood cholesterol increased
  91. SULFASALAZINE [Suspect]
     Active Substance: SULFASALAZINE
     Indication: Product used for unknown indication
  92. SULFASALAZINE [Suspect]
     Active Substance: SULFASALAZINE
  93. SULFASALAZINE [Suspect]
     Active Substance: SULFASALAZINE
  94. SULFASALAZINE [Suspect]
     Active Substance: SULFASALAZINE
     Route: 048
  95. SULFASALAZINE [Suspect]
     Active Substance: SULFASALAZINE
  96. SULFASALAZINE [Suspect]
     Active Substance: SULFASALAZINE
     Route: 048
  97. SULFASALAZINE [Suspect]
     Active Substance: SULFASALAZINE
  98. SULFASALAZINE [Suspect]
     Active Substance: SULFASALAZINE
  99. SULFASALAZINE [Suspect]
     Active Substance: SULFASALAZINE
  100. VITAMIN D NOS [Suspect]
     Active Substance: CHOLECALCIFEROL\ERGOCALCIFEROL
     Indication: Product used for unknown indication
  101. VITAMIN D NOS [Suspect]
     Active Substance: CHOLECALCIFEROL\ERGOCALCIFEROL
  102. ACETAMINOPHEN [Concomitant]
     Active Substance: ACETAMINOPHEN
     Indication: Ill-defined disorder
  103. AMLODIPINE [Concomitant]
     Active Substance: AMLODIPINE BESYLATE
     Indication: Product used for unknown indication
     Route: 065
  104. AMLODIPINE [Concomitant]
     Active Substance: AMLODIPINE BESYLATE
  105. ATORVASTATIN CALCIUM [Concomitant]
     Active Substance: ATORVASTATIN CALCIUM
     Indication: Product used for unknown indication
     Route: 065
  106. BETNOVATE [Concomitant]
     Active Substance: BETAMETHASONE
     Indication: Product used for unknown indication
  107. BISOPROLOL [Concomitant]
     Active Substance: BISOPROLOL
     Indication: Product used for unknown indication
     Route: 065
  108. CALCIUM\MAGNESIUM [Concomitant]
     Active Substance: CALCIUM\MAGNESIUM
     Indication: Product used for unknown indication
  109. CALCIUM\CHOLECALCIFEROL [Concomitant]
     Active Substance: CALCIUM\CHOLECALCIFEROL
     Route: 065
  110. CALCIUM CHLORIDE\POTASSIUM CHLORIDE\SODIUM CHLORIDE\SODIUM LACTATE [Concomitant]
     Active Substance: CALCIUM CHLORIDE\POTASSIUM CHLORIDE\SODIUM CHLORIDE\SODIUM LACTATE
  111. DORZOLAMIDE [Concomitant]
     Active Substance: DORZOLAMIDE
  112. EUMOVATE [Concomitant]
     Active Substance: CLOBETASONE BUTYRATE
  113. FESOTERODINE FUMARATE [Concomitant]
     Active Substance: FESOTERODINE FUMARATE
  114. FOLIC ACID [Concomitant]
     Active Substance: FOLIC ACID
  115. HUMIRA [Concomitant]
     Active Substance: ADALIMUMAB
     Route: 065
  116. JARDIANCE [Concomitant]
     Active Substance: EMPAGLIFLOZIN
  117. LANSOPRAZOLE [Concomitant]
     Active Substance: LANSOPRAZOLE
  118. LATANOPROST [Concomitant]
     Active Substance: LATANOPROST
  119. LYRICA [Concomitant]
     Active Substance: PREGABALIN
  120. POLYETHYLENE GLYCOL 3350 [Concomitant]
     Active Substance: POLYETHYLENE GLYCOL 3350
     Route: 065
  121. NITROFURANTOIN [Concomitant]
     Active Substance: NITROFURANTOIN
  122. PRAVASTATIN SODIUM [Concomitant]
     Active Substance: PRAVASTATIN SODIUM
  123. RAMIPRIL [Concomitant]
     Active Substance: RAMIPRIL
     Route: 065
  124. RIVAROXABAN [Concomitant]
     Active Substance: RIVAROXABAN
     Route: 065
  125. TAMSULOSIN [Concomitant]
     Active Substance: TAMSULOSIN
  126. TETRAHYDROZOLINE HYDROCHLORIDE [Concomitant]
     Active Substance: TETRAHYDROZOLINE HYDROCHLORIDE

REACTIONS (50)
  - Abdominal discomfort [Not Recovered/Not Resolved]
  - Alcohol poisoning [Not Recovered/Not Resolved]
  - Bronchiectasis [Not Recovered/Not Resolved]
  - Burns second degree [Not Recovered/Not Resolved]
  - Cardiac murmur [Not Recovered/Not Resolved]
  - Catarrh [Not Recovered/Not Resolved]
  - Colitis ulcerative [Not Recovered/Not Resolved]
  - Condition aggravated [Not Recovered/Not Resolved]
  - Confusional state [Not Recovered/Not Resolved]
  - Dysgeusia [Not Recovered/Not Resolved]
  - Frequent bowel movements [Not Recovered/Not Resolved]
  - Gingival pain [Not Recovered/Not Resolved]
  - Hypopnoea [Not Recovered/Not Resolved]
  - Nightmare [Not Recovered/Not Resolved]
  - Parosmia [Not Recovered/Not Resolved]
  - Somnolence [Not Recovered/Not Resolved]
  - Stress [Not Recovered/Not Resolved]
  - Swollen tongue [Not Recovered/Not Resolved]
  - Tubulointerstitial nephritis [Not Recovered/Not Resolved]
  - Deep vein thrombosis [Not Recovered/Not Resolved]
  - Pain in extremity [Not Recovered/Not Resolved]
  - Palpitations [Not Recovered/Not Resolved]
  - Arthritis [Not Recovered/Not Resolved]
  - COVID-19 [Not Recovered/Not Resolved]
  - Rectal haemorrhage [Not Recovered/Not Resolved]
  - Haematochezia [Not Recovered/Not Resolved]
  - Cerebrovascular accident [Not Recovered/Not Resolved]
  - Eczema [Not Recovered/Not Resolved]
  - Fatigue [Not Recovered/Not Resolved]
  - Headache [Not Recovered/Not Resolved]
  - Pain [Not Recovered/Not Resolved]
  - Pulmonary embolism [Not Recovered/Not Resolved]
  - Pyrexia [Not Recovered/Not Resolved]
  - Rash [Not Recovered/Not Resolved]
  - Rhinitis [Not Recovered/Not Resolved]
  - Systemic lupus erythematosus [Not Recovered/Not Resolved]
  - Tinnitus [Not Recovered/Not Resolved]
  - Vertigo [Not Recovered/Not Resolved]
  - Weight decreased [Not Recovered/Not Resolved]
  - Depression [Not Recovered/Not Resolved]
  - Migraine [Not Recovered/Not Resolved]
  - Impaired quality of life [Not Recovered/Not Resolved]
  - Impaired work ability [Not Recovered/Not Resolved]
  - Loss of personal independence in daily activities [Not Recovered/Not Resolved]
  - Accidental overdose [Not Recovered/Not Resolved]
  - Inappropriate schedule of product administration [Not Recovered/Not Resolved]
  - Intentional product use issue [Not Recovered/Not Resolved]
  - Medication error [Not Recovered/Not Resolved]
  - Off label use [Not Recovered/Not Resolved]
  - Intentional product use issue [Unknown]
